FAERS Safety Report 18249542 (Version 4)
Quarter: 2022Q2

REPORT INFORMATION
  Report Type: Report from Study
  Country: BR (occurrence: BR)
  Receive Date: 20200910
  Receipt Date: 20220613
  Transmission Date: 20220721
  Serious: Yes (Other)
  Sender: FDA-Public Use
  Company Number: BR-NOVARTISPH-NVSC2020BR244623

PATIENT
  Sex: Male

DRUGS (5)
  1. TEGRETOL XR [Suspect]
     Active Substance: CARBAMAZEPINE
     Indication: Seizure
     Dosage: STARTED 8 OR 10 YEARS AGO
     Route: 065
  2. TEGRETOL XR [Suspect]
     Active Substance: CARBAMAZEPINE
     Dosage: 400 MG, Q12H(EVERY 12 HOUR)
     Route: 065
  3. CARBAMAZEPINE [Concomitant]
     Active Substance: CARBAMAZEPINE
     Indication: Product used for unknown indication
     Dosage: UNK
     Route: 065
  4. DEPAKENE [Concomitant]
     Active Substance: VALPROIC ACID
     Indication: Product used for unknown indication
     Dosage: 2 DF, Q12H (2 TABLETS IN THE MORNING AND 2 TABLETS AT NIGHT)
     Route: 065
  5. DEPAKENE [Concomitant]
     Active Substance: VALPROIC ACID
     Dosage: 500 MG, Q12H(1 YEAR AND A HALF AGO)
     Route: 065

REACTIONS (6)
  - Seizure [Unknown]
  - Thinking abnormal [Recovered/Resolved]
  - Thinking abnormal [Recovering/Resolving]
  - Dysarthria [Recovering/Resolving]
  - Headache [Recovered/Resolved]
  - Dizziness [Recovered/Resolved]

NARRATIVE: CASE EVENT DATE: 20150101
